FAERS Safety Report 9367226 (Version 1)
Quarter: 2013Q2

REPORT INFORMATION
  Report Type: Spontaneous
  Country: US (occurrence: US)
  Receive Date: 20130625
  Receipt Date: 20130625
  Transmission Date: 20140414
  Serious: Yes (Hospitalization)
  Sender: FDA-Public Use
  Company Number: US-ELI_LILLY_AND_COMPANY-US201306006017

PATIENT
  Age: 61 Year
  Sex: Female
  Weight: 90.7 kg

DRUGS (1)
  1. HUMAN INSULIN (RDNA ORIGIN) NPH [Suspect]
     Dosage: UNK

REACTIONS (2)
  - Upper limb fracture [Unknown]
  - Blood glucose increased [Unknown]
